FAERS Safety Report 4977373-4 (Version None)
Quarter: 2006Q2

REPORT INFORMATION
  Report Type: 
  Country: None (occurrence: None)
  Receive Date: 20060413
  Receipt Date: 20060227
  Transmission Date: 20061013
  Serious: Yes (Other)
  Sender: FDA-Public Use
  Company Number: FRWYE460210MAR06

PATIENT
  Age: 19 Year
  Sex: Male

DRUGS (2)
  1. TIGECYCLINE (TIGECYCLINE, INJECTION) [Suspect]
     Indication: BRONCHOPNEUMONIA
     Dosage: INTRAVENOUS
     Route: 042
     Dates: start: 20051001, end: 20051201
  2. TIGECYCLINE (TIGECYCLINE, INJECTION) [Suspect]
     Indication: MYCOBACTERIUM ABSCESSUS INFECTION
     Dosage: INTRAVENOUS
     Route: 042
     Dates: start: 20051001, end: 20051201

REACTIONS (1)
  - DRUG INEFFECTIVE [None]
